FAERS Safety Report 14944352 (Version 1)
Quarter: 2018Q2

REPORT INFORMATION
  Report Type: Report from Study
  Country: JP (occurrence: JP)
  Receive Date: 20180528
  Receipt Date: 20180528
  Transmission Date: 20180711
  Serious: Yes (Disabling)
  Sender: FDA-Public Use
  Company Number: JP-BEH-2018090996

PATIENT
  Age: 81 Year
  Sex: Male
  Weight: 70 kg

DRUGS (14)
  1. BERIPLEX P/N [Suspect]
     Active Substance: COAGULATION FACTOR IX HUMAN\COAGULATION FACTOR VII HUMAN\COAGULATION FACTOR X HUMAN\PROTEIN C\PROTEIN S HUMAN\PROTHROMBIN
     Indication: HAEMORRHAGE
     Dosage: 1750 IU, UNK
     Route: 042
     Dates: start: 20180416
  2. PREDONINE [Suspect]
     Active Substance: PREDNISOLONE
     Dosage: UNK
     Route: 048
     Dates: start: 20180420
  3. WARFARIN [Concomitant]
     Active Substance: WARFARIN
     Indication: ATRIAL FIBRILLATION
     Dosage: 2 MG, UNK
     Route: 048
     Dates: start: 20180424
  4. PREDONINE [Suspect]
     Active Substance: PREDNISOLONE
     Indication: PRODUCT USED FOR UNKNOWN INDICATION
     Dosage: UNK
     Route: 065
     Dates: start: 20180419, end: 20180424
  5. DIPRIVAN [Concomitant]
     Active Substance: PROPOFOL
     Indication: SEDATION
     Dosage: UNK
     Route: 065
     Dates: start: 20180416, end: 20180419
  6. HEPARIN [Concomitant]
     Active Substance: HEPARIN SODIUM
     Dosage: UNK
     Route: 065
     Dates: start: 20180418, end: 20180425
  7. FENTANYL. [Concomitant]
     Active Substance: FENTANYL
     Indication: SEDATION
     Dosage: UNK
     Route: 065
     Dates: start: 20180416, end: 20180419
  8. NICARDIPINE [Concomitant]
     Active Substance: NICARDIPINE
     Dosage: UNK
     Route: 065
     Dates: start: 20180420, end: 20180428
  9. PRECEDEX [Concomitant]
     Active Substance: DEXMEDETOMIDINE HYDROCHLORIDE
     Indication: SEDATION
     Dosage: UNK
     Route: 065
     Dates: start: 20180416, end: 20180419
  10. CEFTRIAXONE. [Concomitant]
     Active Substance: CEFTRIAXONE
     Dosage: UNK
     Route: 065
     Dates: start: 20180416, end: 20180421
  11. ONOACT [Concomitant]
     Active Substance: LANDIOLOL HYDROCHLORIDE
     Dosage: UNK
     Route: 065
     Dates: start: 20180420, end: 20180424
  12. PRIDOL                             /00049602/ [Concomitant]
     Dosage: UNK
     Route: 065
     Dates: start: 20180416, end: 20180417
  13. HUMULIN R [Concomitant]
     Active Substance: INSULIN HUMAN
     Dosage: UNK
     Route: 065
     Dates: start: 20180417, end: 20180418
  14. ZITHROMAC [Concomitant]
     Active Substance: AZITHROMYCIN DIHYDRATE
     Dosage: UNK
     Route: 065
     Dates: start: 20180416, end: 20180421

REACTIONS (3)
  - Hemiplegia [Not Recovered/Not Resolved]
  - Aphasia [Not Recovered/Not Resolved]
  - Haemorrhagic cerebral infarction [Not Recovered/Not Resolved]

NARRATIVE: CASE EVENT DATE: 20180420
